FAERS Safety Report 10519748 (Version 1)
Quarter: 2014Q4

REPORT INFORMATION
  Report Type: Spontaneous
  Country: FR (occurrence: FR)
  Receive Date: 20141015
  Receipt Date: 20141015
  Transmission Date: 20150528
  Serious: Yes (Other)
  Sender: FDA-Public Use
  Company Number: FR-BRISTOL-MYERS SQUIBB COMPANY-21483664

PATIENT
  Age: 82 Year
  Sex: Male

DRUGS (2)
  1. ASPEGIC [Concomitant]
     Active Substance: ASPIRIN DL-LYSINE
  2. HYDREA [Suspect]
     Active Substance: HYDROXYUREA
     Indication: POLYCYTHAEMIA
     Dosage: DOSE REDUCED TO 1 PER DAY
     Dates: start: 20090306, end: 20090730

REACTIONS (3)
  - Pruritus [Recovering/Resolving]
  - Anaemia [Recovered/Resolved]
  - Actinic keratosis [Recovering/Resolving]

NARRATIVE: CASE EVENT DATE: 20090730
